FAERS Safety Report 20219175 (Version 3)
Quarter: 2021Q4

REPORT INFORMATION
  Report Type: Spontaneous
  Country: US (occurrence: US)
  Receive Date: 20211222
  Receipt Date: 20211223
  Transmission Date: 20220303
  Serious: No
  Sender: FDA-Public Use
  Company Number: US-JNJFOC-20211204218

PATIENT
  Age: 48 Year
  Sex: Female

DRUGS (3)
  1. TYLENOL [Suspect]
     Active Substance: ACETAMINOPHEN
     Indication: Pyrexia
     Route: 065
  2. TYLENOL [Suspect]
     Active Substance: ACETAMINOPHEN
     Indication: Pain
  3. COVID-19 VACCINE [Concomitant]
     Indication: Product used for unknown indication
     Dosage: DOSE 3
     Route: 065
     Dates: start: 20211123

REACTIONS (1)
  - Drug ineffective [Unknown]
